FAERS Safety Report 16244459 (Version 4)
Quarter: 2023Q2

REPORT INFORMATION
  Report Type: Spontaneous
  Country: KR (occurrence: KR)
  Receive Date: 20190426
  Receipt Date: 20230607
  Transmission Date: 20230722
  Serious: Yes (Other)
  Sender: FDA-Public Use
  Company Number: KR-BAYER-2019-081759

PATIENT
  Age: 73 Year
  Sex: Female

DRUGS (2)
  1. EYLEA [Suspect]
     Active Substance: AFLIBERCEPT
     Indication: Corneal neovascularisation
     Dosage: UNK, SOLUTION FOR INJECTION, 40MG/ML
  2. EYLEA [Suspect]
     Active Substance: AFLIBERCEPT
     Indication: Neovascular age-related macular degeneration

REACTIONS (4)
  - Retinal oedema [Unknown]
  - Subretinal fluid [Unknown]
  - Eye disorder [Not Recovered/Not Resolved]
  - Inappropriate schedule of product administration [Unknown]
